FAERS Safety Report 11928716 (Version 2)
Quarter: 2016Q1

REPORT INFORMATION
  Report Type: Report from Study
  Country: US (occurrence: US)
  Receive Date: 20160119
  Receipt Date: 20160127
  Transmission Date: 20160526
  Serious: Yes (Death, Hospitalization)
  Sender: FDA-Public Use
  Company Number: US-ACTELION-A-NJ2016-129848

PATIENT
  Age: 13 Month
  Sex: Male

DRUGS (5)
  1. SILDENAFIL. [Concomitant]
     Active Substance: SILDENAFIL
  2. MILRINONE [Concomitant]
     Active Substance: MILRINONE
  3. TRACLEER [Suspect]
     Active Substance: BOSENTAN
     Indication: PULMONARY HYPERTENSION
     Dosage: 125 MG, UNK
     Route: 048
     Dates: start: 20151110, end: 20151221
  4. ALDACTONE [Concomitant]
     Active Substance: SPIRONOLACTONE
  5. LASIX [Concomitant]
     Active Substance: FUROSEMIDE

REACTIONS (3)
  - Cardiac failure [Fatal]
  - Pulmonary hypertension [Fatal]
  - Multiple organ dysfunction syndrome [Fatal]
